FAERS Safety Report 21333398 (Version 1)
Quarter: 2022Q3

REPORT INFORMATION
  Report Type: Spontaneous
  Country: CO (occurrence: CO)
  Receive Date: 20220914
  Receipt Date: 20220914
  Transmission Date: 20221027
  Serious: Yes (Other)
  Sender: FDA-Public Use
  Company Number: CO-PFIZER INC-PV202200054744

PATIENT
  Age: 33 Year
  Sex: Female

DRUGS (2)
  1. PIPERACILLIN SODIUM\TAZOBACTAM SODIUM [Suspect]
     Active Substance: PIPERACILLIN SODIUM\TAZOBACTAM SODIUM
     Indication: Pneumonia necrotising
     Dosage: 4.5 G, 3X/DAY (EACH 8 HOURS)
     Route: 042
  2. VANCOMYCIN [Suspect]
     Active Substance: VANCOMYCIN
     Dosage: 1.2 G, 2X/DAY (EACH 12 HOURS)
     Route: 042

REACTIONS (3)
  - Drug ineffective [Unknown]
  - Pleurectomy [Recovering/Resolving]
  - Lung abscess [Recovering/Resolving]
